FAERS Safety Report 7825638-0 (Version None)
Quarter: 2011Q4

REPORT INFORMATION
  Report Type: 
  Country: None (occurrence: None)
  Receive Date: 20111019
  Receipt Date: 20111013
  Transmission Date: 20120403
  Serious: Yes (Other)
  Sender: FDA-Public Use
  Company Number: US-BAYER-2011-049263

PATIENT
  Sex: Female
  Weight: 126.8 kg

DRUGS (2)
  1. XANAX [Concomitant]
     Indication: PREMEDICATION
     Dosage: UNK
     Dates: start: 20110318
  2. MAGNEVIST [Suspect]
     Indication: NUCLEAR MAGNETIC RESONANCE IMAGING
     Dosage: UNK
     Dates: start: 20110318, end: 20110318

REACTIONS (9)
  - URTICARIA PAPULAR [None]
  - JOINT SWELLING [None]
  - THROMBOPHLEBITIS [None]
  - INJECTION SITE SWELLING [None]
  - INJECTION SITE PAIN [None]
  - LIMB DISCOMFORT [None]
  - JOINT STIFFNESS [None]
  - RASH PRURITIC [None]
  - INJECTION SITE EXTRAVASATION [None]
